FAERS Safety Report 21788122 (Version 2)
Quarter: 2023Q1

REPORT INFORMATION
  Report Type: Report from Study
  Country: DE (occurrence: None)
  Receive Date: 20221228
  Receipt Date: 20230105
  Transmission Date: 20230417
  Serious: Yes (Hospitalization)
  Sender: FDA-Public Use
  Company Number: DE-ROCHE-2246664

PATIENT
  Age: 45 Year
  Sex: Male

DRUGS (14)
  1. PIRFENIDONE [Suspect]
     Active Substance: PIRFENIDONE
     Indication: Bronchiolitis obliterans syndrome
     Dosage: NINE TABLETS PER DAY
     Route: 048
     Dates: start: 20181203
  2. EPOPROSTENOL [Concomitant]
     Active Substance: EPOPROSTENOL
     Route: 042
  3. SULFAMETHOXAZOLE\TRIMETHOPRIM [Concomitant]
     Active Substance: SULFAMETHOXAZOLE\TRIMETHOPRIM
  4. SEMPERA [Concomitant]
     Active Substance: ITRACONAZOLE
  5. ACYCLOVIR [Concomitant]
     Active Substance: ACYCLOVIR
  6. PRASUGREL [Concomitant]
     Active Substance: PRASUGREL
  7. AZITHROMYCIN [Concomitant]
     Active Substance: AZITHROMYCIN
  8. PRAVASTATIN SODIUM [Concomitant]
     Active Substance: PRAVASTATIN SODIUM
  9. URSODIOL [Concomitant]
     Active Substance: URSODIOL
  10. PREGABALIN [Concomitant]
     Active Substance: PREGABALIN
  11. AMPHOTERICIN B [Concomitant]
     Active Substance: AMPHOTERICIN B
  12. ALPROSTADIL ALFADEX [Concomitant]
     Active Substance: ALPROSTADIL ALFADEX
  13. ASPIRIN [Concomitant]
     Active Substance: ASPIRIN
  14. APIXABAN [Concomitant]
     Active Substance: APIXABAN

REACTIONS (5)
  - Hyperaesthesia [Recovered/Resolved with Sequelae]
  - Pain in extremity [Recovered/Resolved with Sequelae]
  - Peripheral coldness [Not Recovered/Not Resolved]
  - Peripheral artery thrombosis [Unknown]
  - Peripheral artery thrombosis [Not Recovered/Not Resolved]

NARRATIVE: CASE EVENT DATE: 20190109
